FAERS Safety Report 14244497 (Version 1)
Quarter: 2017Q4

REPORT INFORMATION
  Report Type: Report from Study
  Country: IN (occurrence: IN)
  Receive Date: 20171201
  Receipt Date: 20171201
  Transmission Date: 20180321
  Serious: Yes (Death, Hospitalization)
  Sender: FDA-Public Use
  Company Number: PHHY2017IN176659

PATIENT
  Age: 62 Year
  Sex: Male
  Weight: 73 kg

DRUGS (3)
  1. ROSEDAY [Concomitant]
     Indication: PRODUCT USED FOR UNKNOWN INDICATION
     Route: 048
  2. PLANEP T [Concomitant]
     Indication: PRODUCT USED FOR UNKNOWN INDICATION
     Route: 048
  3. VYMADA [Suspect]
     Active Substance: SACUBITRIL\VALSARTAN
     Indication: CARDIAC FAILURE
     Dosage: 50 MG, BID
     Route: 048
     Dates: start: 201702

REACTIONS (8)
  - Pancreatic carcinoma [Fatal]
  - Multiple organ dysfunction syndrome [Fatal]
  - Hyperthyroidism [Fatal]
  - Diabetes mellitus [Fatal]
  - Fluid retention [Fatal]
  - Back pain [Fatal]
  - Gastric disorder [Fatal]
  - Constipation [Fatal]

NARRATIVE: CASE EVENT DATE: 201702
